FAERS Safety Report 16139865 (Version 1)
Quarter: 2019Q2

REPORT INFORMATION
  Report Type: Spontaneous
  Country: US (occurrence: US)
  Receive Date: 20190329
  Receipt Date: 20190329
  Transmission Date: 20190711
  Serious: Yes (Hospitalization, Other)
  Sender: FDA-Public Use
  Company Number: None

PATIENT
  Age: 37 Year
  Sex: Female

DRUGS (3)
  1. MAKENA [Suspect]
     Active Substance: HYDROXYPROGESTERONE CAPROATE
     Indication: PREMATURE LABOUR
     Dosage: ?          OTHER FREQUENCY:WEEKLY;?
     Route: 058
  2. PRENATAL PLUS ORAL TABLET 27-1 MG [Concomitant]
  3. ASPIRIN 81 MG CHEWABLE TABLET [Concomitant]

REACTIONS (3)
  - Incorrect dose administered by device [None]
  - Premature labour [None]
  - Injection site extravasation [None]

NARRATIVE: CASE EVENT DATE: 20190322
